FAERS Safety Report 18961712 (Version 1)
Quarter: 2021Q1

REPORT INFORMATION
  Report Type: Spontaneous
  Country: US (occurrence: US)
  Receive Date: 20210303
  Receipt Date: 20210303
  Transmission Date: 20210420
  Serious: Yes (Death, Hospitalization, Other)
  Sender: FDA-Public Use
  Company Number: US-AMGEN-USASP2021029216

PATIENT

DRUGS (3)
  1. DAUNORUBICIN [Concomitant]
     Active Substance: DAUNORUBICIN
     Indication: ACUTE MYELOID LEUKAEMIA
     Dosage: 45 MILLIGRAM/SQ. METER, QD,  ADMINISTERED ON DAYS 1 THROUGH 3
     Route: 042
  2. ARA?C [Concomitant]
     Active Substance: CYTARABINE
     Indication: ACUTE MYELOID LEUKAEMIA
     Dosage: 200 MILLIGRAM/SQ. METER, QD, ADMINISTERED AS A CONTINUOUS INFUSION ON DAYS 1 THROUGH 7
     Route: 042
  3. NEUPOGEN [Suspect]
     Active Substance: FILGRASTIM
     Indication: BONE MARROW FAILURE
     Dosage: UNK
     Route: 065

REACTIONS (21)
  - Acute myeloid leukaemia [Fatal]
  - Central nervous system haemorrhage [Fatal]
  - Fungal infection [Unknown]
  - Pneumonia [Unknown]
  - Pyrexia [Unknown]
  - Death [Fatal]
  - Cardiac dysfunction [Unknown]
  - Thrombocytopenia [Unknown]
  - Off label use [Unknown]
  - Post procedural complication [Fatal]
  - Neutropenia [Unknown]
  - Adverse event [Unknown]
  - Toxicity to various agents [Fatal]
  - Therapeutic procedure [Unknown]
  - Oral candidiasis [Unknown]
  - Impaired quality of life [Unknown]
  - Infection [Fatal]
  - Herpes virus infection [Unknown]
  - Haemorrhage [Unknown]
  - Treatment failure [Unknown]
  - Bone pain [Unknown]
